FAERS Safety Report 5844465 (Version 2)
Quarter: 2014Q2

REPORT INFORMATION
  Report Type: Spontaneous
  Country: US (occurrence: None)
  Receive Date: 20050713
  Receipt Date: 20140522
  Transmission Date: 20141212
  Serious: Yes (Other)
  Sender: FDA-Public Use
  Company Number: 404714

PATIENT
  Age: 48 Year
  Sex: Male

DRUGS (8)
  1. FUZEON [Suspect]
     Indication: HIV INFECTION
     Dates: start: 201405, end: 201405
  2. TENOFOVIR (TENOFOVIR) UNKNOWN [Concomitant]
  3. EMTRICITABINE [Concomitant]
  4. FOSAMPRENAVIR (FOSAMPRENAVIR) [Concomitant]
  5. RITONAVIR (RITONAVIR) [Concomitant]
  6. INDINAVIR SULFATE [Concomitant]
  7. METHADONE HYDROCHLORIDE [Concomitant]
  8. GABAPENTIN (GABAPENTIN) [Concomitant]

REACTIONS (2)
  - Hypersensitivity [None]
  - Hypersensitivity [None]
